FAERS Safety Report 5645357-9 (Version None)
Quarter: 2008Q1

REPORT INFORMATION
  Report Type: 
  Country: None (occurrence: None)
  Receive Date: 20080229
  Receipt Date: 20080222
  Transmission Date: 20080703
  Serious: Yes (Death)
  Sender: FDA-Public Use
  Company Number: B0510198A

PATIENT
  Sex: Female

DRUGS (4)
  1. TYVERB [Suspect]
     Indication: BREAST CANCER
     Dosage: 1250MG PER DAY
     Dates: start: 20070725, end: 20080104
  2. FRAXIFORTE [Suspect]
     Indication: PERIPHERAL ISCHAEMIA
     Dates: start: 20080107
  3. XELODA [Concomitant]
     Dates: end: 20071220
  4. FRAGMIN [Concomitant]
     Indication: THROMBOSIS
     Dosage: .6ML PER DAY
     Route: 058
     Dates: start: 20071021

REACTIONS (1)
  - DEATH [None]
